FAERS Safety Report 9820961 (Version 1)
Quarter: 2013Q4

REPORT INFORMATION
  Report Type: Spontaneous
  Country: US (occurrence: None)
  Receive Date: 20131028
  Receipt Date: 20131028
  Transmission Date: 20140711
  Serious: Yes (Other)
  Sender: FDA-Public Use
  Company Number: 2013US001653

PATIENT
  Sex: Female
  Weight: 98 kg

DRUGS (12)
  1. ICLUSIG (PONATINIB) TABLET, 45MG [Suspect]
     Indication: CHRONIC MYELOID LEUKAEMIA
     Route: 048
     Dates: start: 20130502
  2. METFORMIN (METFORMIN) [Concomitant]
  3. VITAMIN C (VITAMIN C) [Concomitant]
  4. IRON (IRON) [Concomitant]
  5. CLONIDINE (CLONIDINE) [Concomitant]
  6. POTASSIUM (POTASSIUM) [Concomitant]
  7. CALCIUM (CALCIUM) [Concomitant]
  8. FIBER (POLYCARBOPHIL CALCIUM) [Concomitant]
  9. SYNTHROID (LEVOTHYROXINE SODIUM) [Concomitant]
  10. OXYCONTIN (OXYCODONE HYDROCHLORIDE) [Concomitant]
  11. OXYCODONE (OXYCODONE) [Concomitant]
  12. PREVACID (LANSOPRAZOLE) [Concomitant]

REACTIONS (1)
  - Nasopharyngitis [None]
